FAERS Safety Report 5013094-X (Version None)
Quarter: 2006Q2

REPORT INFORMATION
  Report Type: 
  Country: None (occurrence: None)
  Receive Date: 20060530
  Receipt Date: 20060223
  Transmission Date: 20061013
  Serious: No
  Sender: FDA-Public Use
  Company Number: US-GLAXOSMITHKLINE-A0594943A

PATIENT
  Age: 52 Year
  Sex: Female

DRUGS (3)
  1. WELLBUTRIN XL [Suspect]
     Indication: DEPRESSION
     Dosage: 150MG ALTERNATE DAYS
     Route: 048
     Dates: start: 20030101
  2. BLOOD PRESSURE MEDICATION [Concomitant]
  3. ANTIVERT [Concomitant]

REACTIONS (3)
  - CRYING [None]
  - DIZZINESS [None]
  - HEADACHE [None]
